FAERS Safety Report 5146871-5 (Version None)
Quarter: 2006Q4

REPORT INFORMATION
  Report Type: 
  Country: None (occurrence: None)
  Receive Date: 20061109
  Receipt Date: 20060926
  Transmission Date: 20070319
  Serious: Yes (Hospitalization)
  Sender: FDA-Public Use
  Company Number: GB-GLAXOSMITHKLINE-B0440414A

PATIENT
  Age: 18 Year
  Sex: Female

DRUGS (3)
  1. CEFUROXIME AXETIL [Suspect]
     Indication: PYREXIA
     Route: 065
  2. METRONIDAZOLE [Suspect]
     Indication: PYREXIA
     Route: 065
  3. ANESTHETIC [Suspect]
     Route: 065

REACTIONS (4)
  - ABORTION SPONTANEOUS [None]
  - ACUTE RESPIRATORY DISTRESS SYNDROME [None]
  - DRUG EXPOSURE DURING PREGNANCY [None]
  - VAGINAL HAEMORRHAGE [None]
